FAERS Safety Report 6889052-7 (Version None)
Quarter: 2010Q3

REPORT INFORMATION
  Report Type: 
  Country: None (occurrence: None)
  Receive Date: 20100730
  Receipt Date: 20071220
  Transmission Date: 20110219
  Serious: No
  Sender: FDA-Public Use
  Company Number: US-PFIZER INC-2007108360

PATIENT
  Sex: Male
  Weight: 70.31 kg

DRUGS (4)
  1. LIPITOR [Suspect]
     Indication: BLOOD CHOLESTEROL ABNORMAL
     Route: 048
     Dates: start: 20071101, end: 20071101
  2. TOPROL-XL [Concomitant]
  3. ISOSORBIDE [Concomitant]
  4. ASPIRIN [Concomitant]

REACTIONS (1)
  - TINNITUS [None]
